FAERS Safety Report 14704269 (Version 1)
Quarter: 2018Q2

REPORT INFORMATION
  Report Type: Spontaneous
  Country: US (occurrence: US)
  Receive Date: 20180402
  Receipt Date: 20180402
  Transmission Date: 20180711
  Serious: No
  Sender: FDA-Public Use
  Company Number: US-ALLERGAN-1748313US

PATIENT
  Age: 77 Year
  Sex: Male

DRUGS (2)
  1. CANASA [Suspect]
     Active Substance: MESALAMINE
     Indication: GASTROINTESTINAL DISORDER
     Dosage: 1000 MG, UNK
     Route: 054
     Dates: start: 201708, end: 201708
  2. CANASA [Suspect]
     Active Substance: MESALAMINE
     Dosage: 1000 MG, UNK
     Route: 054
     Dates: start: 201708, end: 201708

REACTIONS (4)
  - Constipation [Unknown]
  - Drug ineffective [Unknown]
  - Off label use [Unknown]
  - Drug ineffective for unapproved indication [Unknown]

NARRATIVE: CASE EVENT DATE: 201708
